FAERS Safety Report 5926687-X (Version None)
Quarter: 2008Q4

REPORT INFORMATION
  Report Type: 
  Country: None (occurrence: None)
  Receive Date: 20081017
  Receipt Date: 20081006
  Transmission Date: 20090506
  Serious: Yes (Death, Hospitalization)
  Sender: FDA-Public Use
  Company Number: ADE2008-0330

PATIENT
  Age: 73 Year
  Sex: Female

DRUGS (5)
  1. CEFUROXIME AXETIL [Suspect]
     Indication: URINARY TRACT INFECTION
     Dosage: 2 X 500MG DAILY
  2. FUROSEMIDE [Suspect]
     Indication: RENAL FAILURE CHRONIC
  3. LISINOPRIL [Concomitant]
  4. ACETYLSALICYLIC ACID SRT [Concomitant]
  5. CALCIUM CARBONATE [Concomitant]

REACTIONS (10)
  - ARTHRALGIA [None]
  - DRUG INTERACTION [None]
  - GASTROINTESTINAL HAEMORRHAGE [None]
  - GRANULOCYTOPENIA [None]
  - HAEMOGLOBIN DECREASED [None]
  - LEUKOPENIA [None]
  - MULTI-ORGAN FAILURE [None]
  - PYREXIA [None]
  - SEPSIS [None]
  - TOXIC EPIDERMAL NECROLYSIS [None]
